FAERS Safety Report 5313009-0 (Version None)
Quarter: 2007Q2

REPORT INFORMATION
  Report Type: 
  Country: None (occurrence: None)
  Receive Date: 20070424
  Receipt Date: 20070412
  Transmission Date: 20071010
  Serious: Yes (Death, Life-Threatening, Hospitalization, Other)
  Sender: FDA-Public Use
  Company Number: 2005EU000629

PATIENT
  Age: 67 Year
  Sex: Male

DRUGS (8)
  1. TACROLIMUS [Suspect]
     Indication: RENAL TRANSPLANT
     Dosage: 1.00 MG, BID, ORAL
     Route: 048
     Dates: start: 20031009, end: 20050119
  2. MYCOPHENOLATE MOFETIL [Suspect]
     Indication: RENAL TRANSPLANT
     Dosage: 500.00 MG, BID, ORAL
     Route: 048
     Dates: start: 20031008, end: 20041207
  3. PREDNISONE TAB [Suspect]
     Indication: RENAL TRANSPLANT
     Dosage: 5.00 MG, UID/QD, ORAL
     Route: 048
     Dates: start: 20031010, end: 20050526
  4. METHYLPREDNISOLONE [Suspect]
     Indication: RENAL TRANSPLANT
     Dosage: 500.00 MG, IV NOS
     Route: 042
     Dates: start: 20050119, end: 20050526
  5. SIROLIMUS (SIROLIMUS) [Suspect]
     Dosage: 3.00 MG/D
     Dates: start: 20050120, end: 20050215
  6. INSULIN (INSULIN) [Concomitant]
  7. ZOCOR [Concomitant]
  8. METOPROLOL TARTRATE [Concomitant]

REACTIONS (34)
  - ABDOMINAL PAIN [None]
  - ARTERIOVENOUS FISTULA OPERATION [None]
  - ASTHENIA [None]
  - BK VIRUS INFECTION [None]
  - CARDIAC ARREST [None]
  - CARDIOMEGALY [None]
  - CHEST PAIN [None]
  - CHOLECYSTITIS ACUTE [None]
  - CHRONIC ALLOGRAFT NEPHROPATHY [None]
  - ELECTROMECHANICAL DISSOCIATION [None]
  - ERUCTATION [None]
  - GALLBLADDER DISORDER [None]
  - HAEMATOCRIT DECREASED [None]
  - HAEMATURIA [None]
  - HAEMODIALYSIS [None]
  - HICCUPS [None]
  - HYPERTENSIVE EMERGENCY [None]
  - HYPOTENSION [None]
  - INFECTION IN AN IMMUNOCOMPROMISED HOST [None]
  - INFLUENZA LIKE ILLNESS [None]
  - KIDNEY TRANSPLANT REJECTION [None]
  - LOSS OF CONSCIOUSNESS [None]
  - NAUSEA [None]
  - PNEUMONIA [None]
  - POST PROCEDURAL HAEMORRHAGE [None]
  - POST PROCEDURAL INFECTION [None]
  - PUPIL FIXED [None]
  - REFUSAL OF TREATMENT BY RELATIVE [None]
  - RENAL TRANSPLANT [None]
  - RESPIRATORY ARREST [None]
  - RETCHING [None]
  - SURGICAL PROCEDURE REPEATED [None]
  - TROPONIN I INCREASED [None]
  - VENTRICULAR FIBRILLATION [None]
